FAERS Safety Report 11888989 (Version 1)
Quarter: 2016Q1

REPORT INFORMATION
  Report Type: Spontaneous
  Country: US (occurrence: US)
  Receive Date: 20160105
  Receipt Date: 20160105
  Transmission Date: 20160526
  Serious: No
  Sender: FDA-Public Use
  Company Number: US-PFIZER INC-2015438324

PATIENT
  Age: 85 Year
  Sex: Male

DRUGS (1)
  1. INLYTA [Suspect]
     Active Substance: AXITINIB
     Indication: NEOPLASM MALIGNANT
     Dosage: UNK (1 AND 5 MG)
     Dates: start: 20120629, end: 20151207

REACTIONS (2)
  - Disease progression [Unknown]
  - Neoplasm malignant [Unknown]
